FAERS Safety Report 14413495 (Version 2)
Quarter: 2018Q1

REPORT INFORMATION
  Report Type: Report from Study
  Country: US (occurrence: US)
  Receive Date: 20180119
  Receipt Date: 20180201
  Transmission Date: 20180509
  Serious: Yes (Other)
  Sender: FDA-Public Use
  Company Number: US-TAKEDA-2018TUS001429

PATIENT
  Sex: Female

DRUGS (2)
  1. VORTIOXETINE. [Suspect]
     Active Substance: VORTIOXETINE
     Dosage: 5 MG, UNK
     Route: 065
  2. VORTIOXETINE. [Suspect]
     Active Substance: VORTIOXETINE
     Indication: PRODUCT USED FOR UNKNOWN INDICATION
     Dosage: 20 MG, UNK
     Route: 065

REACTIONS (9)
  - Drug dispensing error [Unknown]
  - Sluggishness [Unknown]
  - Influenza [Unknown]
  - Blood glucose increased [Unknown]
  - Spinal operation [Unknown]
  - Suicidal ideation [Unknown]
  - Sleep disorder [Unknown]
  - Feeling abnormal [Unknown]
  - Depression [Unknown]
